FAERS Safety Report 20741933 (Version 1)
Quarter: 2022Q2

REPORT INFORMATION
  Report Type: Spontaneous
  Country: FR (occurrence: FR)
  Receive Date: 20220423
  Receipt Date: 20220423
  Transmission Date: 20220720
  Serious: Yes (Other)
  Sender: FDA-Public Use
  Company Number: None

PATIENT
  Age: 83 Year
  Sex: Male

DRUGS (5)
  1. POSACONAZOLE [Interacting]
     Active Substance: POSACONAZOLE
     Indication: Product used for unknown indication
     Dosage: UNIT DOSE : 300 MG , FREQUENCY TIME : 1 DAYS
     Route: 048
     Dates: start: 20210929
  2. ATORVASTATIN [Interacting]
     Active Substance: ATORVASTATIN
     Indication: Product used for unknown indication
     Dosage: THERAPY START DATE : ASKU, UNIT DOSE : 40 MG , FREQUENCY TIME : 1 DAYS
     Route: 048
  3. EZETIMIBE [Interacting]
     Active Substance: EZETIMIBE
     Indication: Product used for unknown indication
     Dosage: THERAPY START DATE :  ASKU, UNIT DOSE : 10 MG , FREQUENCY TIME : 1 DAYS
     Route: 048
  4. OMEPRAZOLE [Interacting]
     Active Substance: OMEPRAZOLE
     Indication: Product used for unknown indication
     Dosage: THERAPY START DATE :  ASKU, UNIT DOSE :  20 MG , FREQUENCY TIME : 1 DAYS
     Route: 048
  5. VENETOCLAX [Interacting]
     Active Substance: VENETOCLAX
     Indication: Product used for unknown indication
     Dosage: UNIT DOSE : 100 MG , FREQUENCY TIME : 1 DAYS, THERAPY DURATION : 124  DAYS
     Route: 048
     Dates: start: 20210929, end: 20220131

REACTIONS (4)
  - Hepatic cytolysis [Not Recovered/Not Resolved]
  - Acute kidney injury [Not Recovered/Not Resolved]
  - Rhabdomyolysis [Not Recovered/Not Resolved]
  - Drug interaction [Unknown]

NARRATIVE: CASE EVENT DATE: 20220202
